FAERS Safety Report 8418129-X (Version None)
Quarter: 2012Q2

REPORT INFORMATION
  Report Type: 
  Country: None (occurrence: None)
  Receive Date: 20120531
  Receipt Date: 20120517
  Transmission Date: 20120825
  Serious: Yes (Hospitalization, Disabling, Other)
  Sender: FDA-Public Use
  Company Number: 2011MA002523

PATIENT
  Sex: Female
  Weight: 75.7507 kg

DRUGS (30)
  1. BETAMETHASONE [Concomitant]
  2. FENTANYL-100 [Concomitant]
  3. TEMAZEPAM [Concomitant]
  4. ATENOLOL [Concomitant]
  5. LAMOTRIGINE [Concomitant]
  6. SIMVASTATIN [Concomitant]
  7. ALPRAZOLAM [Concomitant]
  8. HYDROCODONE [Concomitant]
  9. AMITRIPTYLINE HCL [Concomitant]
  10. FLEXERIL [Concomitant]
  11. MULTVITAMINS [Concomitant]
  12. NEXIUM [Concomitant]
  13. NITROFURANTOIN [Concomitant]
  14. OMEPRAZOLE [Concomitant]
  15. PREDNISONE TAB [Concomitant]
  16. CYCLOBENZAPRINE [Concomitant]
  17. DICLOFENAC SODIUM [Concomitant]
  18. METRONIDAZOLE [Concomitant]
  19. CIPROFLOXACIN [Concomitant]
  20. METHOCARBAMOL [Concomitant]
  21. SULFAMETHOXAZOLE AND TRIMETHOPRIM [Concomitant]
  22. ZOLOFT [Concomitant]
  23. METOCLOPRAMIDE [Suspect]
     Indication: GASTROINTESTINAL DISORDER
     Dosage: 10 MG;QC + HS;PO
     Route: 048
     Dates: start: 20040515, end: 20100501
  24. METOCLOPRAMIDE [Suspect]
     Indication: GASTROOESOPHAGEAL REFLUX DISEASE
     Dosage: 10 MG;QC + HS;PO
     Route: 048
     Dates: start: 20040515, end: 20100501
  25. METOCLOPRAMIDE [Suspect]
     Indication: CROHN'S DISEASE
     Dosage: 10 MG;QC + HS;PO
     Route: 048
     Dates: start: 20040515, end: 20100501
  26. GABAPENTIN [Concomitant]
  27. HYDROCODONE BITARTRATE + ACETAMINOPHEN [Concomitant]
  28. LISINOPRIL [Concomitant]
  29. NASAREL NASAL SPRAY [Concomitant]
  30. SERTRALINE HYDROCHLORIDE [Concomitant]

REACTIONS (36)
  - ECONOMIC PROBLEM [None]
  - EMOTIONAL DISORDER [None]
  - DEPRESSION [None]
  - CEREBELLAR ATAXIA [None]
  - RESTLESS LEGS SYNDROME [None]
  - TREMOR [None]
  - MYOCLONUS [None]
  - CHEST PAIN [None]
  - TACHYCARDIA [None]
  - MIGRAINE [None]
  - PHONOPHOBIA [None]
  - DIZZINESS [None]
  - MUSCLE SPASMS [None]
  - BLEPHAROSPASM [None]
  - INTERVERTEBRAL DISC PROTRUSION [None]
  - PHOTOPHOBIA [None]
  - EXCESSIVE EYE BLINKING [None]
  - BLOOD CHOLESTEROL INCREASED [None]
  - GAIT DISTURBANCE [None]
  - INSOMNIA [None]
  - GASTROOESOPHAGEAL REFLUX DISEASE [None]
  - SENSORY LOSS [None]
  - ANXIETY DISORDER [None]
  - EYELID FUNCTION DISORDER [None]
  - MUSCLE TWITCHING [None]
  - ELECTROCARDIOGRAM ABNORMAL [None]
  - BRONCHITIS [None]
  - FALL [None]
  - DISEASE COMPLICATION [None]
  - GASTROINTESTINAL DISORDER [None]
  - SKIN DISCOLOURATION [None]
  - CEREBELLAR SYNDROME [None]
  - DYSKINESIA [None]
  - MEMORY IMPAIRMENT [None]
  - HYPOAESTHESIA [None]
  - AFFECTIVE DISORDER [None]
